FAERS Safety Report 9017998 (Version 1)
Quarter: 2013Q1

REPORT INFORMATION
  Report Type: Spontaneous
  Country: US (occurrence: None)
  Receive Date: 20130110
  Receipt Date: 20130110
  Transmission Date: 20140127
  Serious: Yes (Hospitalization)
  Sender: FDA-Public Use
  Company Number: None

PATIENT
  Sex: Male

DRUGS (3)
  1. CRESTOR [Suspect]
     Indication: HYPERCHOLESTEROLAEMIA
     Dosage: 10MG? QDAY PO
     Route: 048
     Dates: start: 2012, end: 2013
  2. ZYTIGA 250MG JANSSEN BIOTECH [Suspect]
     Indication: PROSTATE CANCER
     Dosage: 750MG QDAY PO
     Route: 048
     Dates: start: 2012, end: 2013
  3. PREDNISONE [Concomitant]

REACTIONS (1)
  - Muscular weakness [None]
